FAERS Safety Report 20637632 (Version 1)
Quarter: 2022Q1

REPORT INFORMATION
  Report Type: Spontaneous
  Country: ES (occurrence: ES)
  Receive Date: 20220325
  Receipt Date: 20220325
  Transmission Date: 20220423
  Serious: Yes (Other)
  Sender: FDA-Public Use
  Company Number: None

PATIENT
  Age: 51 Year
  Sex: Male

DRUGS (3)
  1. ENALAPRIL [Suspect]
     Active Substance: ENALAPRIL
     Indication: Hypertension
     Dosage: ENALAPRIL 20 MG 30 TABLETS, UNIT DOSE: 20 MG, FREQUENCY TIME: 24 HR, DURATION 745 DAYS
     Route: 048
     Dates: start: 20190219, end: 20210304
  2. ATORVASTATIN [Concomitant]
     Active Substance: ATORVASTATIN
  3. OMEPRAZOLE [Concomitant]
     Active Substance: OMEPRAZOLE
     Dosage: OMEPRAZOL (2141A)

REACTIONS (1)
  - Sexual dysfunction [Unknown]

NARRATIVE: CASE EVENT DATE: 20220304
